FAERS Safety Report 11365406 (Version 1)
Quarter: 2015Q3

REPORT INFORMATION
  Report Type: Spontaneous
  Country: FR (occurrence: FR)
  Receive Date: 20150811
  Receipt Date: 20150811
  Transmission Date: 20151125
  Serious: Yes (Hospitalization)
  Sender: FDA-Public Use
  Company Number: FR-BRISTOL-MYERS SQUIBB COMPANY-BMS-2015-051440

PATIENT
  Age: 2 Year
  Sex: Female
  Weight: 13.6 kg

DRUGS (5)
  1. ONDANSETRON ACCORD [Suspect]
     Active Substance: ONDANSETRON
     Indication: CONGENITAL RETINOBLASTOMA
     Dosage: UNK
     Route: 042
  2. CARBOPLATINE KABI [Suspect]
     Active Substance: CARBOPLATIN
     Indication: CONGENITAL RETINOBLASTOMA
     Dosage: 340 MG, UNK
     Route: 042
  3. ETOPOPHOS [Suspect]
     Active Substance: ETOPOSIDE PHOSPHATE
     Indication: CONGENITAL RETINOBLASTOMA
     Dosage: 13 MG, UNK
     Route: 042
  4. PLITICAN [Suspect]
     Active Substance: ALIZAPRIDE HYDROCHLORIDE
     Indication: CONGENITAL RETINOBLASTOMA
     Dosage: 25 MG, UNK
     Route: 042
  5. VINCRISTINE TEVA [Suspect]
     Active Substance: VINCRISTINE
     Indication: CONGENITAL RETINOBLASTOMA
     Dosage: 0.85 MG, UNK
     Route: 042

REACTIONS (7)
  - Chills [Recovered/Resolved]
  - Livedo reticularis [Recovered/Resolved]
  - Erythema [Recovered/Resolved]
  - Vomiting [Recovered/Resolved]
  - Pyrexia [Recovered/Resolved]
  - Off label use [Unknown]
  - Peripheral coldness [Recovered/Resolved]

NARRATIVE: CASE EVENT DATE: 20150610
